FAERS Safety Report 7830296-5 (Version None)
Quarter: 2011Q4

REPORT INFORMATION
  Report Type: 
  Country: None (occurrence: None)
  Receive Date: 20111021
  Receipt Date: 20111013
  Transmission Date: 20120403
  Serious: Yes (Hospitalization, Other)
  Sender: FDA-Public Use
  Company Number: US-VERTEX PHARMACEUTICALS INC.-AE-2011-001391

PATIENT
  Sex: Female

DRUGS (3)
  1. PEGASYS [Concomitant]
     Indication: HEPATITIS C
     Dates: start: 20110101
  2. INCIVEK [Suspect]
     Indication: HEPATITIS C
     Route: 048
     Dates: start: 20110701
  3. RIBAVIRIN [Concomitant]
     Indication: HEPATITIS C
     Dates: start: 20110101

REACTIONS (12)
  - PLATELET COUNT DECREASED [None]
  - CHILLS [None]
  - HAEMOGLOBIN DECREASED [None]
  - PYREXIA [None]
  - PLEURAL EFFUSION [None]
  - ALANINE AMINOTRANSFERASE INCREASED [None]
  - DRUG RASH WITH EOSINOPHILIA AND SYSTEMIC SYMPTOMS [None]
  - COUGH [None]
  - DYSPNOEA [None]
  - OEDEMA [None]
  - WHITE BLOOD CELL COUNT DECREASED [None]
  - ASPARTATE AMINOTRANSFERASE INCREASED [None]
